FAERS Safety Report 5804066-3 (Version None)
Quarter: 2008Q3

REPORT INFORMATION
  Report Type: 
  Country: None (occurrence: None)
  Receive Date: 20080707
  Receipt Date: 20080707
  Transmission Date: 20090109
  Serious: Yes (Disabling)
  Sender: FDA-Public Use
  Company Number: None

PATIENT
  Age: 55 Year
  Sex: Female

DRUGS (6)
  1. AREDIA [Suspect]
     Indication: MULTIPLE MYELOMA
     Dosage: 90 MG MONTHLY IV
     Route: 042
     Dates: start: 19970601, end: 20010701
  2. VINCRISTINE [Concomitant]
  3. ADRIAMYCIN PFS [Concomitant]
  4. CYTOXAN [Concomitant]
  5. PREDNISONE TAB [Concomitant]
  6. DECADRON [Concomitant]

REACTIONS (2)
  - BONE DISORDER [None]
  - PAIN [None]
